FAERS Safety Report 26034265 (Version 2)
Quarter: 2025Q4

REPORT INFORMATION
  Report Type: Report from Study
  Country: EU (occurrence: EU)
  Receive Date: 20251112
  Receipt Date: 20251114
  Transmission Date: 20260118
  Serious: Yes (Death)
  Sender: DAIICHI
  Company Number: EU-DSJP-DS-2025-176191-ES

PATIENT
  Sex: Female

DRUGS (1)
  1. DATOPOTAMAB DERUXTECAN [Suspect]
     Active Substance: DATOPOTAMAB DERUXTECAN
     Indication: Non-small cell lung cancer metastatic
     Dosage: UNK
     Route: 065

REACTIONS (1)
  - Disease progression [Fatal]

NARRATIVE: CASE EVENT DATE: 20250331
